FAERS Safety Report 4726182-X (Version None)
Quarter: 2005Q3

REPORT INFORMATION
  Report Type: 
  Country: None (occurrence: None)
  Receive Date: 20050725
  Receipt Date: 20050725
  Transmission Date: 20060218
  Serious: Yes (Other)
  Sender: FDA-Public Use
  Company Number: None

PATIENT
  Age: 48 Year
  Sex: Female
  Weight: 56.6996 kg

DRUGS (3)
  1. ADVAIR DISKUS 100/50 [Suspect]
     Indication: ASTHMA
     Dosage: 2 TO 3 DAYS  2004
     Dates: start: 20040101
  2. TRIPHASIL-28 [Concomitant]
  3. MULTIVITAMIN SUPPLEMENT [Concomitant]

REACTIONS (1)
  - DISCOMFORT [None]
